FAERS Safety Report 26042630 (Version 8)
Quarter: 2025Q4

REPORT INFORMATION
  Report Type: Report from Study
  Country: US (occurrence: US)
  Receive Date: 20251113
  Receipt Date: 20251223
  Transmission Date: 20260117
  Serious: Yes (Other)
  Sender: MALLINCKRODT
  Company Number: US-MALLINCKRODT-MNK202507085

PATIENT
  Age: 4 Month
  Sex: Female
  Weight: 8 kg

DRUGS (5)
  1. CORTICOTROPIN [Suspect]
     Active Substance: CORTICOTROPIN
     Indication: Infantile spasms
     Route: 030
     Dates: start: 20251106, end: 202511
  2. CORTICOTROPIN [Suspect]
     Active Substance: CORTICOTROPIN
     Dosage: 4 UNITS
     Route: 030
     Dates: start: 202511, end: 20251204
  3. KEPPRA [Concomitant]
     Active Substance: LEVETIRACETAM
     Indication: Seizure
     Dosage: UNKNOWN
  4. PEPCID [Concomitant]
     Active Substance: FAMOTIDINE
     Dosage: UNKNOWN
  5. PEPSIN [Concomitant]
     Active Substance: PEPSIN
     Dosage: UNKNOWN

REACTIONS (11)
  - Oxygen saturation decreased [Unknown]
  - Blood pressure increased [Not Recovered/Not Resolved]
  - Sleep disorder [Recovering/Resolving]
  - Polyuria [Unknown]
  - Feeling hot [Unknown]
  - Increased appetite [Not Recovered/Not Resolved]
  - Diarrhoea [Not Recovered/Not Resolved]
  - Irritability [Not Recovered/Not Resolved]
  - Rash [Unknown]
  - Injection site bruising [Unknown]
  - Erythema [Recovered/Resolved]

NARRATIVE: CASE EVENT DATE: 20250101
